FAERS Safety Report 23309396 (Version 1)
Quarter: 2023Q4

REPORT INFORMATION
  Report Type: Spontaneous
  Country: CN (occurrence: CN)
  Receive Date: 20231218
  Receipt Date: 20231218
  Transmission Date: 20240110
  Serious: Yes (Hospitalization, Other)
  Sender: FDA-Public Use
  Company Number: None

PATIENT
  Age: 55 Year
  Sex: Male
  Weight: 50 kg

DRUGS (6)
  1. CYCLOPHOSPHAMIDE [Suspect]
     Active Substance: CYCLOPHOSPHAMIDE
     Indication: Breast cancer male
     Dosage: 0.9 G, ONCE, DILUTED WITH 100 ML OF SODIUM CHLORIDE, SECOND CYCLE OF CHEMOTHERAPY
     Route: 042
     Dates: start: 20231116, end: 20231116
  2. CYCLOPHOSPHAMIDE [Suspect]
     Active Substance: CYCLOPHOSPHAMIDE
     Indication: Hormone receptor positive breast cancer
  3. SODIUM CHLORIDE [Suspect]
     Active Substance: SODIUM CHLORIDE
     Indication: Medication dilution
     Dosage: 100 ML, ONCE DOSAGE FORM: INJECTION USED TO DILUTE 0.9 G OF CYCLOPHOSPHAMIDE, SECOND CYCLE OF CHEMOT
     Route: 042
     Dates: start: 20231116, end: 20231116
  4. ANHYDROUS DEXTROSE [Suspect]
     Active Substance: ANHYDROUS DEXTROSE
     Indication: Medication dilution
     Dosage: 100 ML, ONCE, DOSAGE FORM: INJECTION USED TO DILUTE 70 MG OF PIRARUBICIN HYDROCHLORIDE, SECOND CYCLE
     Route: 042
     Dates: start: 20231116, end: 20231116
  5. PIRARUBICIN HYDROCHLORIDE [Suspect]
     Active Substance: PIRARUBICIN HYDROCHLORIDE
     Indication: Breast cancer male
     Dosage: 70 MG, ONCE, DILUTED WITH 100 ML OF GLUCOSE, SECOND CYCLE OF CHEMOTHERAPY
     Route: 042
     Dates: start: 20231116, end: 20231116
  6. PIRARUBICIN HYDROCHLORIDE [Suspect]
     Active Substance: PIRARUBICIN HYDROCHLORIDE
     Indication: Hormone receptor positive breast cancer

REACTIONS (7)
  - Myelosuppression [Recovering/Resolving]
  - White blood cell count decreased [Recovering/Resolving]
  - Lymphocyte count decreased [Recovering/Resolving]
  - Neutrophil count decreased [Recovering/Resolving]
  - Red blood cell count decreased [Recovering/Resolving]
  - Haemoglobin decreased [Recovering/Resolving]
  - Platelet count decreased [Recovering/Resolving]

NARRATIVE: CASE EVENT DATE: 20231120
